FAERS Safety Report 4421231-0 (Version None)
Quarter: 2004Q3

REPORT INFORMATION
  Report Type: 
  Country: None (occurrence: None)
  Receive Date: 20040707
  Receipt Date: 20040505
  Transmission Date: 20050211
  Serious: No
  Sender: FDA-Public Use
  Company Number: SU-2004-002343

PATIENT
  Age: 73 Year
  Sex: Female
  Weight: 63.5036 kg

DRUGS (4)
  1. BENICAR HCT [Suspect]
     Indication: HYPERTENSION
     Dosage: 20.125 QD PO
     Route: 048
     Dates: start: 20031001
  2. MULTIVITAMIN [Concomitant]
  3. CALCIUM [Concomitant]
  4. VITAMIN E [Concomitant]

REACTIONS (1)
  - EYE REDNESS [None]
